FAERS Safety Report 18246964 (Version 2)
Quarter: 2021Q1

REPORT INFORMATION
  Report Type: Report from Study
  Country: US (occurrence: US)
  Receive Date: 20200909
  Receipt Date: 20210202
  Transmission Date: 20210419
  Serious: Yes (Death, Hospitalization, Other)
  Sender: FDA-Public Use
  Company Number: US-BAUSCH-BL-2020-025561

PATIENT
  Age: 75 Year
  Sex: Female
  Weight: 73.55 kg

DRUGS (1)
  1. XIFAXAN [Suspect]
     Active Substance: RIFAXIMIN
     Indication: HEPATIC ENCEPHALOPATHY
     Dosage: TAKEN A COUPLE OF TIMES
     Route: 048
     Dates: start: 202005

REACTIONS (4)
  - Primary biliary cholangitis [Fatal]
  - Renal failure [Unknown]
  - Inability to afford medication [Unknown]
  - Hospitalisation [Unknown]

NARRATIVE: CASE EVENT DATE: 2020
